FAERS Safety Report 9219893 (Version 1)
Quarter: 2013Q2

REPORT INFORMATION
  Report Type: Spontaneous
  Country: US (occurrence: None)
  Receive Date: 20130408
  Receipt Date: 20130408
  Transmission Date: 20140414
  Serious: Yes (Hospitalization)
  Sender: FDA-Public Use
  Company Number: None

PATIENT
  Age: 77 Year
  Sex: Male
  Weight: 89.1 kg

DRUGS (1)
  1. CEPHALEXIN [Suspect]
     Indication: MASTITIS
     Dosage: 500 MG  BID PO
     Route: 048
     Dates: start: 20130226, end: 20130303

REACTIONS (8)
  - Nausea [None]
  - Vomiting [None]
  - Malaise [None]
  - Asthenia [None]
  - Pyrexia [None]
  - Liver function test abnormal [None]
  - Cholelithiasis [None]
  - Hepatitis A antibody positive [None]
